FAERS Safety Report 22078069 (Version 2)
Quarter: 2023Q1

REPORT INFORMATION
  Report Type: Spontaneous
  Country: US (occurrence: None)
  Receive Date: 20230309
  Receipt Date: 20230328
  Transmission Date: 20230417
  Serious: Yes (Other)
  Sender: FDA-Public Use
  Company Number: 2023A051273

PATIENT
  Sex: Male
  Weight: 81.6 kg

DRUGS (1)
  1. BYDUREON BCISE [Suspect]
     Active Substance: EXENATIDE
     Indication: Type 2 diabetes mellitus
     Dosage: 2.0MG UNKNOWN
     Route: 058

REACTIONS (4)
  - Blood glucose increased [Unknown]
  - Injection site haemorrhage [Unknown]
  - Device malfunction [Unknown]
  - Product dose omission issue [Unknown]
